FAERS Safety Report 11772759 (Version 1)
Quarter: 2015Q4

REPORT INFORMATION
  Report Type: Spontaneous
  Country: US (occurrence: US)
  Receive Date: 20151124
  Receipt Date: 20151124
  Transmission Date: 20160304
  Serious: Yes (Hospitalization)
  Sender: FDA-Public Use
  Company Number: US-MALLINCKRODT-T201502030

PATIENT
  Age: 42 Year
  Sex: Male

DRUGS (5)
  1. GABLOFEN [Suspect]
     Active Substance: BACLOFEN
     Indication: MUSCLE SPASTICITY
     Dosage: 49 MCG/DAY
     Route: 037
     Dates: start: 20150223, end: 20150408
  2. OXYCODONE [Concomitant]
     Active Substance: OXYCODONE
  3. EFFEXOR [Concomitant]
     Active Substance: VENLAFAXINE HYDROCHLORIDE
  4. BACLOFEN. [Concomitant]
     Active Substance: BACLOFEN
     Dosage: PRN
  5. VALIUM [Concomitant]
     Active Substance: DIAZEPAM
     Dosage: PRN

REACTIONS (3)
  - Implant site dehiscence [Unknown]
  - Implant site infection [Unknown]
  - Acne [Unknown]

NARRATIVE: CASE EVENT DATE: 20150406
